APPROVED DRUG PRODUCT: SANDRIL
Active Ingredient: RESERPINE
Strength: 0.1MG
Dosage Form/Route: TABLET;ORAL
Application: N009376 | Product #004
Applicant: ELI LILLY AND CO
Approved: Approved Prior to Jan 1, 1982 | RLD: No | RS: No | Type: DISCN